FAERS Safety Report 8965811 (Version 1)
Quarter: 2012Q4

REPORT INFORMATION
  Report Type: 
  Country: US (occurrence: US)
  Receive Date: 20121217
  Receipt Date: 20121217
  Transmission Date: 20130627
  Serious: No
  Sender: FDA-Public Use
  Company Number: US-BAYER-2012-126392

PATIENT
  Sex: Male

DRUGS (6)
  1. LEVITRA [Suspect]
     Indication: ERECTILE DYSFUNCTION
     Dosage: 20 mg, OW
     Route: 048
     Dates: start: 2012
  2. ATENOLOL CHLORTHALIDONE [Concomitant]
     Indication: BLOOD PRESSURE HIGH
     Dosage: 100/25 QD
  3. METFORMIN [Concomitant]
     Indication: DIABETES
     Dosage: UNK UNK, BID
  4. ASPIRIN [Concomitant]
  5. POTASSIUM [Concomitant]
  6. GLUCOSAMINE [Concomitant]
     Indication: JOINT PAIN

REACTIONS (1)
  - Drug ineffective [Not Recovered/Not Resolved]
